FAERS Safety Report 23439082 (Version 2)
Quarter: 2024Q1

REPORT INFORMATION
  Report Type: Report from Study
  Country: CO (occurrence: CO)
  Receive Date: 20240124
  Receipt Date: 20240305
  Transmission Date: 20240410
  Serious: Yes (Hospitalization, Other)
  Sender: FDA-Public Use
  Company Number: CO-SA-SAC20240123000598

PATIENT
  Age: 77 Year
  Sex: Male
  Weight: 86 kg

DRUGS (9)
  1. DUPILUMAB [Suspect]
     Active Substance: DUPILUMAB
     Indication: Nasal polyps
     Dosage: 300 MG, QOW
     Route: 058
     Dates: start: 20220303
  2. METOPROLOL [Concomitant]
     Active Substance: METOPROLOL
     Dosage: UNK
  3. PRAZOSIN [Concomitant]
     Active Substance: PRAZOSIN
     Indication: Hypertension
     Dosage: UNK
  4. LOSARTAN [Concomitant]
     Active Substance: LOSARTAN
     Indication: Hypertension
     Dosage: UNK
  5. AMLODIPINE [Concomitant]
     Active Substance: AMLODIPINE BESYLATE
     Dosage: 5 MG IN THE MORNING AND 10 MG AT NIGHT
  6. LEVOTHYROXINE [Concomitant]
     Active Substance: LEVOTHYROXINE\LEVOTHYROXINE SODIUM
     Dosage: UNK
  7. ACETAMINOPHEN [Concomitant]
     Active Substance: ACETAMINOPHEN
     Dosage: UNK
  8. METOPROLOL [Concomitant]
     Active Substance: METOPROLOL
     Dosage: UNK
  9. DOLEX FORTE [Concomitant]
     Active Substance: ACETAMINOPHEN\ASPIRIN\CAFFEINE
     Dosage: UNK

REACTIONS (4)
  - Cerebral infarction [Recovering/Resolving]
  - Cerebral thrombosis [Recovering/Resolving]
  - Ear pain [Recovering/Resolving]
  - Neck pain [Recovering/Resolving]

NARRATIVE: CASE EVENT DATE: 20240205
